FAERS Safety Report 10878793 (Version 1)
Quarter: 2015Q1

REPORT INFORMATION
  Report Type: Spontaneous
  Country: SE (occurrence: SE)
  Receive Date: 20150302
  Receipt Date: 20150302
  Transmission Date: 20150721
  Serious: Yes (Hospitalization)
  Sender: FDA-Public Use
  Company Number: SE-SA-2015SA021650

PATIENT
  Age: 67 Year
  Sex: Female
  Weight: 97 kg

DRUGS (1)
  1. ARAVA [Suspect]
     Active Substance: LEFLUNOMIDE
     Indication: RHEUMATOID ARTHRITIS
     Route: 048
     Dates: start: 20110401, end: 20110610

REACTIONS (9)
  - Tendon disorder [Recovering/Resolving]
  - Peripheral swelling [Recovering/Resolving]
  - Alopecia [Recovered/Resolved]
  - Arthralgia [Recovering/Resolving]
  - Rash [Recovering/Resolving]
  - Thrombophlebitis superficial [Recovering/Resolving]
  - Erysipelas [Recovering/Resolving]
  - Infection [Recovering/Resolving]
  - Pruritus [Recovering/Resolving]

NARRATIVE: CASE EVENT DATE: 201105
